FAERS Safety Report 12594659 (Version 1)
Quarter: 2016Q3

REPORT INFORMATION
  Report Type: Report from Study
  Country: US (occurrence: US)
  Receive Date: 20160726
  Receipt Date: 20160726
  Transmission Date: 20161109
  Serious: Yes (Hospitalization)
  Sender: FDA-Public Use
  Company Number: US-ACTELION-A-US2016-131881

PATIENT
  Age: 22 Year
  Sex: Male

DRUGS (16)
  1. UPTRAVI [Concomitant]
     Active Substance: SELEXIPAG
     Indication: PULMONARY ARTERIAL HYPERTENSION
     Dosage: UNK
     Route: 048
     Dates: start: 201606
  2. LORAZEPAM. [Concomitant]
     Active Substance: LORAZEPAM
  3. PREDNISONE. [Concomitant]
     Active Substance: PREDNISONE
     Dosage: UNK
     Dates: start: 20151120
  4. VELETRI [Suspect]
     Active Substance: EPOPROSTENOL
     Indication: PULMONARY ARTERIAL HYPERTENSION
     Dosage: 28.19 NG/KG, PER MIN
     Route: 042
     Dates: start: 20151107
  5. HALOPERIDOL. [Concomitant]
     Active Substance: HALOPERIDOL
  6. IPRATROPIUM [Concomitant]
     Active Substance: IPRATROPIUM
  7. VELETRI [Suspect]
     Active Substance: EPOPROSTENOL
     Dosage: 30 NG/KG, PER MIN
     Route: 042
     Dates: start: 20151028
  8. OXYCODONE [Concomitant]
     Active Substance: OXYCODONE
  9. REMICADE [Concomitant]
     Active Substance: INFLIXIMAB
     Dosage: UNK
     Dates: start: 20160328
  10. PROFOL [Concomitant]
     Active Substance: PROPOFOL
  11. FENTANYL. [Concomitant]
     Active Substance: FENTANYL
  12. HYDROMORPHONE [Concomitant]
     Active Substance: HYDROMORPHONE
  13. FERROUS SULFATE. [Concomitant]
     Active Substance: FERROUS SULFATE
     Dosage: UNK
     Dates: start: 20160527
  14. OPSUMIT [Suspect]
     Active Substance: MACITENTAN
     Indication: PULMONARY ARTERIAL HYPERTENSION
     Dosage: UNK
     Route: 048
     Dates: start: 20160608
  15. HYDRALAZINE [Concomitant]
     Active Substance: HYDRALAZINE HYDROCHLORIDE
  16. SEROQUEL [Concomitant]
     Active Substance: QUETIAPINE FUMARATE

REACTIONS (11)
  - Transfusion [Recovered/Resolved]
  - Haemoptysis [Recovered/Resolved]
  - Haematemesis [Unknown]
  - Device leakage [Unknown]
  - Device malfunction [Unknown]
  - Catheter site infection [Recovered/Resolved]
  - Pneumonia [Recovered/Resolved]
  - Respiratory failure [Recovered/Resolved]
  - Pleural effusion [Recovered/Resolved]
  - Catheter site inflammation [Recovered/Resolved]
  - Device related infection [Not Recovered/Not Resolved]

NARRATIVE: CASE EVENT DATE: 20160210
